FAERS Safety Report 19036080 (Version 1)
Quarter: 2021Q1

REPORT INFORMATION
  Report Type: Spontaneous
  Country: US (occurrence: US)
  Receive Date: 20210321
  Receipt Date: 20210321
  Transmission Date: 20210420
  Serious: Yes (Life-Threatening, Hospitalization)
  Sender: FDA-Public Use
  Company Number: US-TEVA-2021-US-1890765

PATIENT
  Age: 29 Year
  Sex: Female

DRUGS (3)
  1. MAGNESIUM SULFATE. [Suspect]
     Active Substance: MAGNESIUM SULFATE
     Indication: VENTRICULAR TACHYCARDIA
     Route: 042
  2. SODIUM?BICARBONATE [Suspect]
     Active Substance: SODIUM BICARBONATE
     Indication: VENTRICULAR TACHYCARDIA
     Route: 050
  3. LOPERAMIDE [Suspect]
     Active Substance: LOPERAMIDE
     Indication: ABDOMINAL DISCOMFORT
     Dosage: 300 TABLETS DAILY (ONE TABLET WAS 2MG FOR AN APPROXIMATE TOTAL OF 600MG).
     Route: 065

REACTIONS (5)
  - Drug ineffective [Unknown]
  - Overdose [Unknown]
  - Drug abuse [Unknown]
  - Ventricular tachycardia [Recovered/Resolved]
  - Torsade de pointes [Recovering/Resolving]
